FAERS Safety Report 4463019-0 (Version None)
Quarter: 2004Q3

REPORT INFORMATION
  Report Type: 
  Country: None (occurrence: None)
  Receive Date: 20040927
  Receipt Date: 20040915
  Transmission Date: 20050211
  Serious: Yes (Hospitalization, Disabling)
  Sender: FDA-Public Use
  Company Number: 2003150122CA

PATIENT
  Age: 71 Year
  Sex: Female
  Weight: 49.4 kg

DRUGS (1)
  1. ZYVOX [Suspect]
     Indication: OSTEOMYELITIS
     Dosage: 600 MG, BID

REACTIONS (3)
  - APLASIA PURE RED CELL [None]
  - IRON DEFICIENCY [None]
  - NEUROPATHY PERIPHERAL [None]
